FAERS Safety Report 11164170 (Version 3)
Quarter: 2015Q3

REPORT INFORMATION
  Report Type: Spontaneous
  Country: JP (occurrence: JP)
  Receive Date: 20150604
  Receipt Date: 20150824
  Transmission Date: 20151125
  Serious: Yes (Other)
  Sender: FDA-Public Use
  Company Number: JP-ASTELLAS-2015JP011568

PATIENT
  Age: 70 Year
  Sex: Male

DRUGS (7)
  1. GONAX [Concomitant]
     Active Substance: DEGARELIX
     Indication: PROSTATE CANCER
     Route: 058
     Dates: start: 20130301, end: 20130301
  2. GONAX [Concomitant]
     Active Substance: DEGARELIX
     Indication: PROSTATE CANCER
     Route: 058
     Dates: start: 20130329
  3. RINDERON V [Concomitant]
     Active Substance: BETAMETHASONE VALERATE
     Indication: ECZEMA NUMMULAR
     Dosage: UNK UNK, TWICE DAILY
     Route: 065
     Dates: start: 20121219
  4. XTANDI [Suspect]
     Active Substance: ENZALUTAMIDE
     Route: 048
     Dates: start: 20150430
  5. HIRUDOID                           /00723701/ [Concomitant]
     Indication: ECZEMA NUMMULAR
     Dosage: UNK UNK, TWICE DAILY
     Route: 065
     Dates: start: 20121219
  6. DALACIN T [Concomitant]
     Active Substance: CLINDAMYCIN PHOSPHATE
     Indication: ECZEMA NUMMULAR
     Dosage: UNK UNK, TWICE OR THRICE DAILY
     Route: 065
     Dates: start: 20150318
  7. XTANDI [Suspect]
     Active Substance: ENZALUTAMIDE
     Indication: PROSTATE CANCER
     Route: 048
     Dates: start: 20150121, end: 20150326

REACTIONS (1)
  - Hepatic function abnormal [Recovered/Resolved]

NARRATIVE: CASE EVENT DATE: 20150326
